FAERS Safety Report 8428881-5 (Version None)
Quarter: 2012Q2

REPORT INFORMATION
  Report Type: 
  Country: None (occurrence: None)
  Receive Date: 20120606
  Receipt Date: 20120510
  Transmission Date: 20120825
  Serious: No
  Sender: FDA-Public Use
  Company Number: 2012P1023882

PATIENT
  Age: 38 Year
  Sex: Female
  Weight: 65.7716 kg

DRUGS (4)
  1. RIFAMPIN [Suspect]
     Indication: TUBERCULOSIS
     Dosage: 600 MG;QD;ORAL
     Route: 048
     Dates: start: 20120428, end: 20120516
  2. LEXAPRO [Concomitant]
  3. VITAMIN TAB [Concomitant]
  4. ESCITALOPRAM OXALATE [Suspect]
     Indication: DEPRESSION
     Dosage: 2.5 MG; QD

REACTIONS (3)
  - VERTIGO [None]
  - TINNITUS [None]
  - DIZZINESS POSTURAL [None]
